FAERS Safety Report 8954762 (Version 1)
Quarter: 2012Q4

REPORT INFORMATION
  Report Type: 
  Country: US (occurrence: US)
  Receive Date: 20121207
  Receipt Date: 20121207
  Transmission Date: 20130627
  Serious: Yes (Death)
  Sender: FDA-Public Use
  Company Number: US-PFIZER INC-2012306539

PATIENT
  Sex: Female

DRUGS (1)
  1. BOSULIF [Suspect]
     Indication: CHRONIC MYELOID LEUKEMIA WITHOUT MENTION OF REMISSION
     Dosage: 500 mg, daily
     Route: 048
     Dates: start: 20121013, end: 20121106

REACTIONS (1)
  - Death [Fatal]
